FAERS Safety Report 4856926-8 (Version None)
Quarter: 2005Q4

REPORT INFORMATION
  Report Type: 
  Country: None (occurrence: None)
  Receive Date: 20051219
  Receipt Date: 20041130
  Transmission Date: 20060501
  Serious: No
  Sender: FDA-Public Use
  Company Number: US-GLAXOSMITHKLINE-A0535481A

PATIENT
  Age: 41 Year
  Sex: Male

DRUGS (1)
  1. EQUATE NTS 14MG [Suspect]
     Dates: start: 20041125

REACTIONS (7)
  - ABNORMAL DREAMS [None]
  - DISSOCIATION [None]
  - FEELING ABNORMAL [None]
  - FEELING HOT [None]
  - INSOMNIA [None]
  - NAUSEA [None]
  - STOMACH DISCOMFORT [None]
